FAERS Safety Report 9601722 (Version 1)
Quarter: 2013Q4

REPORT INFORMATION
  Report Type: Spontaneous
  Country: US (occurrence: None)
  Receive Date: 20131004
  Receipt Date: 20131004
  Transmission Date: 20140711
  Serious: No
  Sender: FDA-Public Use
  Company Number: None

PATIENT
  Age: 13 Year
  Sex: Female
  Weight: 77.11 kg

DRUGS (1)
  1. CIPROFLOXACN [Suspect]
     Dosage: 1 TABLET
     Route: 048
     Dates: start: 20130929, end: 20131001

REACTIONS (6)
  - Influenza like illness [None]
  - Myalgia [None]
  - Arthralgia [None]
  - Dizziness [None]
  - Nausea [None]
  - Disturbance in attention [None]
